FAERS Safety Report 6369986-2 (Version None)
Quarter: 2009Q3

REPORT INFORMATION
  Report Type: 
  Country: None (occurrence: None)
  Receive Date: 20090923
  Receipt Date: 20070518
  Transmission Date: 20100115
  Serious: Yes (Hospitalization, Other)
  Sender: FDA-Public Use
  Company Number: US-ASTRAZENECA-2006UW01930

PATIENT
  Age: 18467 Day
  Sex: Male
  Weight: 191.4 kg

DRUGS (23)
  1. SEROQUEL [Suspect]
     Indication: BIPOLAR DISORDER
     Dosage: 25 MG-200 MG
     Route: 048
     Dates: start: 20050322
  2. SEROQUEL [Suspect]
     Indication: PSYCHOTIC DISORDER
     Dosage: 25 MG-200 MG
     Route: 048
     Dates: start: 20050322
  3. SEROQUEL [Suspect]
     Indication: SLEEP DISORDER
     Dosage: 25 MG-200 MG
     Route: 048
     Dates: start: 20050322
  4. ABILIFY [Concomitant]
     Dates: start: 20060301
  5. METHADONE HCL [Concomitant]
     Indication: BACK PAIN
     Dates: start: 20050101, end: 20060301
  6. ASPIRIN [Concomitant]
  7. FLUOXETINE [Concomitant]
  8. LIPITOR [Concomitant]
  9. LISINOPRIL [Concomitant]
  10. METOPROLOL TARTRATE [Concomitant]
  11. METFORMIN HCL [Concomitant]
  12. CARISOPRODOL [Concomitant]
  13. COMBIVENT [Concomitant]
  14. GLIMEPIRIDE [Concomitant]
  15. LAMICTAL [Concomitant]
  16. TRAZODONE [Concomitant]
  17. CYMBALTA [Concomitant]
  18. HYDROCODONE [Concomitant]
  19. WELLBUTRIN [Concomitant]
  20. LANTUS [Concomitant]
  21. NABUMETONE [Concomitant]
  22. PROZAC [Concomitant]
  23. TEGRETOL [Concomitant]

REACTIONS (2)
  - DIABETES MELLITUS [None]
  - KETOACIDOSIS [None]
